FAERS Safety Report 5527633-3 (Version None)
Quarter: 2007Q4

REPORT INFORMATION
  Report Type: 
  Country: None (occurrence: None)
  Receive Date: 20071126
  Receipt Date: 20071126
  Transmission Date: 20080405
  Serious: Yes (Hospitalization)
  Sender: FDA-Public Use
  Company Number: None

PATIENT
  Sex: Female

DRUGS (1)
  1. FENTANYL [Suspect]
     Dosage: 75MCG/Q48HRS
     Dates: start: 20040427

REACTIONS (4)
  - MALAISE [None]
  - NAUSEA [None]
  - PAIN [None]
  - VOMITING [None]
